FAERS Safety Report 16263478 (Version 1)
Quarter: 2019Q2

REPORT INFORMATION
  Report Type: Spontaneous
  Country: US (occurrence: US)
  Receive Date: 20190502
  Receipt Date: 20190502
  Transmission Date: 20190711
  Serious: Yes (Life-Threatening, Other)
  Sender: FDA-Public Use
  Company Number: US-ASTRAZENECA-2019SE25026

PATIENT
  Age: 10393 Day
  Sex: Female
  Weight: 65.8 kg

DRUGS (3)
  1. VITAMION D [Concomitant]
  2. SYMBICORT [Suspect]
     Active Substance: BUDESONIDE\FORMOTEROL FUMARATE DIHYDRATE
     Indication: ASTHMA
     Dosage: 160/4.5 MCG, 2 PUFFS TWICE DAILY
     Route: 055
     Dates: start: 20190128, end: 20190128
  3. LORATADINE. [Concomitant]
     Active Substance: LORATADINE

REACTIONS (8)
  - Anaphylactic shock [Unknown]
  - Vitamin D deficiency [Unknown]
  - Heart rate increased [Unknown]
  - Urticaria [Unknown]
  - Food allergy [Unknown]
  - Anaphylactic reaction [Unknown]
  - Seasonal allergy [Unknown]
  - Hypersensitivity [Unknown]

NARRATIVE: CASE EVENT DATE: 20190128
